FAERS Safety Report 23926309 (Version 1)
Quarter: 2024Q2

REPORT INFORMATION
  Report Type: Spontaneous
  Country: CN (occurrence: CN)
  Receive Date: 20240531
  Receipt Date: 20240531
  Transmission Date: 20240716
  Serious: Yes (Other)
  Sender: FDA-Public Use
  Company Number: None

PATIENT
  Age: 77 Year
  Sex: Female
  Weight: 55 kg

DRUGS (8)
  1. CYCLOPHOSPHAMIDE [Suspect]
     Active Substance: CYCLOPHOSPHAMIDE
     Indication: Plasma cell myeloma
     Dosage: 0.4 G, ONE TIME IN ONE DAY, DILUTED WITH 500 ML OF 0.9% SODIUM CHLORIDE (PROVINCIAL CENTRALIZED PROC
     Route: 041
     Dates: start: 20240515, end: 20240515
  2. CYCLOPHOSPHAMIDE [Suspect]
     Active Substance: CYCLOPHOSPHAMIDE
     Dosage: 0.4 G (HIGH ALERT), ONE TIME IN ONE DAY, DILUTED WITH 500 ML OF 0.9% SODIUM CHLORIDE (PROVINCIAL CEN
     Route: 041
     Dates: start: 20240518, end: 20240518
  3. BORTEZOMIB [Suspect]
     Active Substance: BORTEZOMIB
     Indication: Plasma cell myeloma
     Dosage: 3.5 MG (QIPULE), ONE TIME IN ONE DAY, DILUTED WITH 1.4 ML OF 0.9% SODIUM CHLORIDE (PROVINCIAL SET)
     Route: 058
     Dates: start: 20240515, end: 20240515
  4. BORTEZOMIB [Suspect]
     Active Substance: BORTEZOMIB
     Dosage: 3.5 MG (QIPULE), ONE TIME IN ONE DAY, DILUTED WITH 1.4 ML OF 0.9% SODIUM CHLORIDE (PROVINCIAL SET)
     Route: 058
     Dates: start: 20240518, end: 20240518
  5. SODIUM CHLORIDE [Suspect]
     Active Substance: SODIUM CHLORIDE
     Indication: Medication dilution
     Dosage: 0.9% 500 ML (PROVINCIAL CENTRALIZED PROCUREMENT), ONE TIME IN ONE DAY, USED TO DILUTE 0.4 G OF CYCLO
     Route: 041
     Dates: start: 20240515, end: 20240515
  6. SODIUM CHLORIDE [Suspect]
     Active Substance: SODIUM CHLORIDE
     Dosage: 0.9% 500 ML (PROVINCIAL CENTRALIZED PROCUREMENT), ONE TIME IN ONE DAY, USED TO DILUTE 0.4 G OF CYCLO
     Route: 041
     Dates: start: 20240518, end: 20240518
  7. SODIUM CHLORIDE [Suspect]
     Active Substance: SODIUM CHLORIDE
     Dosage: 0.9% 1.4 ML, ONE TIME IN ONE DAY, DOSAGE FORM: 10 ML, USED TO DILUTE 3.5 MG OF BORTEZOMIB (PROVINCIA
     Route: 058
     Dates: start: 20240515, end: 20240515
  8. SODIUM CHLORIDE [Suspect]
     Active Substance: SODIUM CHLORIDE
     Dosage: 0.9% 1.4 ML, ONE TIME IN ONE DAY, DOSAGE FORM: 10 ML, USED TO DILUTE 3.5 MG OF BORTEZOMIB (PROVINCIA
     Route: 058
     Dates: start: 20240518, end: 20240518

REACTIONS (4)
  - Plasma cell myeloma [Unknown]
  - Condition aggravated [Unknown]
  - Drug-induced liver injury [Unknown]
  - Hepatic function abnormal [Recovering/Resolving]

NARRATIVE: CASE EVENT DATE: 20240519
